FAERS Safety Report 20914452 (Version 2)
Quarter: 2022Q4

REPORT INFORMATION
  Report Type: Spontaneous
  Country: US (occurrence: US)
  Receive Date: 20220604
  Receipt Date: 20221101
  Transmission Date: 20230113
  Serious: No
  Sender: FDA-Public Use
  Company Number: US-SA-SAC20220524000861

PATIENT
  Age: 58 Year
  Sex: Female
  Weight: 79.3 kg

DRUGS (1)
  1. DUPIXENT [Suspect]
     Active Substance: DUPILUMAB
     Indication: Dermatitis atopic
     Dosage: 300 MG, QOW
     Route: 058
     Dates: start: 202202

REACTIONS (8)
  - Skin haemorrhage [Unknown]
  - Skin weeping [Unknown]
  - Injection site mass [Unknown]
  - Upper-airway cough syndrome [Unknown]
  - Cough [Unknown]
  - Oropharyngeal discomfort [Unknown]
  - Pruritus [Unknown]
  - Rash [Unknown]

NARRATIVE: CASE EVENT DATE: 20221019
